FAERS Safety Report 10186188 (Version 1)
Quarter: 2014Q2

REPORT INFORMATION
  Report Type: Spontaneous
  Country: US (occurrence: US)
  Receive Date: 20140521
  Receipt Date: 20140521
  Transmission Date: 20141212
  Serious: Yes (Hospitalization)
  Sender: FDA-Public Use
  Company Number: US-GLAXOSMITHKLINE-A1073879A

PATIENT
  Age: 52 Year
  Sex: Female

DRUGS (2)
  1. ADVAIR HFA [Suspect]
     Indication: ASTHMA
     Route: 065
     Dates: start: 20031016
  2. VENTOLIN HFA [Suspect]
     Indication: ASTHMA
     Route: 065
     Dates: start: 20031016

REACTIONS (1)
  - Renal failure [Unknown]
